FAERS Safety Report 6518101-0 (Version None)
Quarter: 2009Q4

REPORT INFORMATION
  Report Type: 
  Country: None (occurrence: None)
  Receive Date: 20091224
  Receipt Date: 20091216
  Transmission Date: 20100525
  Serious: Yes (Hospitalization)
  Sender: FDA-Public Use
  Company Number: CA-ELI_LILLY_AND_COMPANY-CA200912004082

PATIENT
  Sex: Male

DRUGS (1)
  1. FORTEO [Suspect]
     Indication: HYPOCALCAEMIA
     Dosage: 20 UG, 2/D
     Dates: start: 20091211, end: 20091212

REACTIONS (4)
  - HOSPITALISATION [None]
  - MEDICATION ERROR [None]
  - OFF LABEL USE [None]
  - OVERDOSE [None]
